FAERS Safety Report 11546354 (Version 1)
Quarter: 2015Q3

REPORT INFORMATION
  Report Type: Spontaneous
  Country: US (occurrence: US)
  Receive Date: 20150903
  Receipt Date: 20150903
  Transmission Date: 20151125
  Serious: No
  Sender: FDA-Public Use
  Company Number: US-ELI_LILLY_AND_COMPANY-US201109005835

PATIENT
  Age: 53 Year
  Sex: Male

DRUGS (1)
  1. HUMALOG [Suspect]
     Active Substance: INSULIN LISPRO
     Indication: TYPE 2 DIABETES MELLITUS
     Dosage: UNK, PRN

REACTIONS (8)
  - Feeling abnormal [Unknown]
  - Anxiety [Unknown]
  - Drug ineffective [Not Recovered/Not Resolved]
  - Tremor [Unknown]
  - Frustration [Unknown]
  - Blood glucose increased [Not Recovered/Not Resolved]
  - Fatigue [Unknown]
  - Insomnia [Unknown]

NARRATIVE: CASE EVENT DATE: 20110918
